FAERS Safety Report 22390515 (Version 1)
Quarter: 2023Q2

REPORT INFORMATION
  Report Type: Spontaneous
  Country: IE (occurrence: IE)
  Receive Date: 20230531
  Receipt Date: 20230531
  Transmission Date: 20230722
  Serious: Yes (Other)
  Sender: FDA-Public Use
  Company Number: IE-BAYER-2023A067612

PATIENT
  Age: 76 Year
  Sex: Male

DRUGS (1)
  1. NUBEQA [Suspect]
     Active Substance: DAROLUTAMIDE
     Indication: Prostate cancer
     Dosage: 300 MG
     Route: 048
     Dates: start: 20230405, end: 20230510

REACTIONS (3)
  - Abdominal distension [Recovering/Resolving]
  - Discomfort [Recovering/Resolving]
  - Adverse drug reaction [None]

NARRATIVE: CASE EVENT DATE: 20230409
